FAERS Safety Report 8303561-5 (Version None)
Quarter: 2012Q2

REPORT INFORMATION
  Report Type: 
  Country: None (occurrence: None)
  Receive Date: 20120423
  Receipt Date: 20120414
  Transmission Date: 20120825
  Serious: Yes (Hospitalization)
  Sender: FDA-Public Use
  Company Number: US-BAYER-2011-083341

PATIENT
  Age: 41 Year
  Sex: Female
  Weight: 104 kg

DRUGS (6)
  1. CHERATUSSIN AC [Concomitant]
     Indication: NASOPHARYNGITIS
     Dosage: UNK
     Dates: start: 20080201
  2. ACYCLOVIR [Concomitant]
     Indication: VIRAL INFECTION
     Dosage: UNK
     Dates: start: 20080301
  3. AZITHROMYCIN [Concomitant]
     Dosage: UNK
     Dates: start: 20080201
  4. METRONIDAZOLE [Concomitant]
     Dosage: UNK
     Dates: start: 20080401
  5. LEVAQUIN [Concomitant]
     Dosage: UNK
     Dates: start: 20080401
  6. YAZ [Suspect]
     Indication: PREMENSTRUAL SYNDROME
     Dates: start: 20080101

REACTIONS (4)
  - CHEST PAIN [None]
  - EMOTIONAL DISTRESS [None]
  - DYSPNOEA [None]
  - PULMONARY EMBOLISM [None]
